FAERS Safety Report 4499944-4 (Version None)
Quarter: 2004Q4

REPORT INFORMATION
  Report Type: 
  Country: None (occurrence: None)
  Receive Date: 20041112
  Receipt Date: 20041026
  Transmission Date: 20050328
  Serious: Yes (Hospitalization, Disabling)
  Sender: FDA-Public Use
  Company Number: DE-MERCK-0410DEU00714

PATIENT
  Age: 82 Year
  Sex: Female
  Weight: 71 kg

DRUGS (5)
  1. VIOXX [Suspect]
     Indication: POLYARTHRITIS
     Route: 048
     Dates: start: 20030801, end: 20041001
  2. VIOXX [Suspect]
     Indication: PAIN
     Route: 048
     Dates: start: 20030801, end: 20041001
  3. ESOMEPRAZOLE MAGNESIUM [Concomitant]
     Indication: GASTRIC DISORDER
     Route: 065
     Dates: start: 20000101
  4. AMLODIPINE BESYLATE [Concomitant]
     Indication: HYPERTENSION
     Route: 065
     Dates: start: 19990101
  5. ASPIRIN [Concomitant]
     Route: 065

REACTIONS (1)
  - MYOCARDIAL INFARCTION [None]
